FAERS Safety Report 6429882-9 (Version None)
Quarter: 2009Q4

REPORT INFORMATION
  Report Type: 
  Country: None (occurrence: None)
  Receive Date: 20091103
  Receipt Date: 20091023
  Transmission Date: 20100525
  Serious: Yes (Death, Life-Threatening, Other)
  Sender: FDA-Public Use
  Company Number: 2009-04311

PATIENT
  Age: 64 Year
  Sex: Male

DRUGS (2)
  1. VELCADE [Suspect]
     Indication: MULTIPLE MYELOMA
     Dosage: UNK, UNK, INTRAVENOUS
     Route: 042
     Dates: start: 20090302
  2. DEXAMETHASONE TAB [Suspect]
     Indication: MULTIPLE MYELOMA
     Dosage: UNK, UNK, INTRAVENOUS
     Route: 042
     Dates: start: 20090302

REACTIONS (4)
  - CYTOMEGALOVIRUS INFECTION [None]
  - HERPES SIMPLEX [None]
  - MULTI-ORGAN FAILURE [None]
  - PNEUMOCYSTIS JIROVECI PNEUMONIA [None]
